FAERS Safety Report 4734267-7 (Version None)
Quarter: 2005Q3

REPORT INFORMATION
  Report Type: 
  Country: None (occurrence: None)
  Receive Date: 20050721
  Receipt Date: 20050417
  Transmission Date: 20060218
  Serious: No
  Sender: FDA-Public Use
  Company Number: 2005SP000232

PATIENT
  Age: 61 Year
  Sex: Male
  Weight: 74.8435 kg

DRUGS (3)
  1. LUNESTA [Suspect]
     Indication: INITIAL INSOMNIA
     Dosage: 3 MG;1X; ORAL; 1.5 MG; HS; ORAL;3 MG;HS;ORAL
     Route: 048
     Dates: start: 20050415, end: 20050415
  2. LUNESTA [Suspect]
  3. LUNESTA [Suspect]

REACTIONS (1)
  - DYSGEUSIA [None]
